FAERS Safety Report 6129971-2 (Version None)
Quarter: 2009Q1

REPORT INFORMATION
  Report Type: 
  Country: None (occurrence: None)
  Receive Date: 20090323
  Receipt Date: 20090323
  Transmission Date: 20090719
  Serious: Yes (Hospitalization)
  Sender: FDA-Public Use
  Company Number: None

PATIENT
  Age: 58 Year
  Sex: Female
  Weight: 57.6068 kg

DRUGS (1)
  1. ACTONEL [Suspect]
     Indication: RESORPTION BONE INCREASED
     Dosage: ONE PILL ONCE
     Dates: start: 20090305, end: 20090305

REACTIONS (7)
  - ARTHRALGIA [None]
  - BLOOD CALCIUM DECREASED [None]
  - BLOOD PHOSPHORUS DECREASED [None]
  - BLOOD POTASSIUM DECREASED [None]
  - CHILLS [None]
  - MYALGIA [None]
  - VOMITING [None]
